FAERS Safety Report 13778318 (Version 1)
Quarter: 2017Q3

REPORT INFORMATION
  Report Type: Spontaneous
  Country: US (occurrence: US)
  Receive Date: 20170721
  Receipt Date: 20170721
  Transmission Date: 20171127
  Serious: No
  Sender: FDA-Public Use
  Company Number: US-TEVA-701669USA

PATIENT
  Sex: Male

DRUGS (1)
  1. AMPHETAMINE W/DEXTROAMPHETAMINE [Suspect]
     Active Substance: AMPHETAMINE SULFATE\DEXTROAMPHETAMINE
     Dosage: 30 MILLIGRAM DAILY;
     Route: 065

REACTIONS (6)
  - Product substitution issue [Unknown]
  - Feeling abnormal [Unknown]
  - Headache [Unknown]
  - Confusional state [Unknown]
  - Pain [Unknown]
  - Product quality issue [Unknown]
